FAERS Safety Report 17706576 (Version 2)
Quarter: 2022Q2

REPORT INFORMATION
  Report Type: Report from Study
  Country: US (occurrence: US)
  Receive Date: 20200424
  Receipt Date: 20220513
  Transmission Date: 20220721
  Serious: No
  Sender: FDA-Public Use
  Company Number: CID000000000004025

PATIENT
  Age: 42 Year
  Sex: Female

DRUGS (3)
  1. FENTORA [Suspect]
     Active Substance: FENTANYL CITRATE
     Indication: Tumour pain
     Dosage: 800 MICROGRAM DAILY;
     Route: 002
  2. FENTORA [Suspect]
     Active Substance: FENTANYL CITRATE
     Indication: Tumour compression
  3. MORPHINE [Concomitant]
     Active Substance: MORPHINE
     Dosage: LONG ACTING; 15 MG

REACTIONS (2)
  - Therapy interrupted [Unknown]
  - Pain [Not Recovered/Not Resolved]

NARRATIVE: CASE EVENT DATE: 20200401
